FAERS Safety Report 7505825-1 (Version None)
Quarter: 2011Q2

REPORT INFORMATION
  Report Type: 
  Country: None (occurrence: None)
  Receive Date: 20110526
  Receipt Date: 20110517
  Transmission Date: 20111010
  Serious: Yes (Hospitalization, Other)
  Sender: FDA-Public Use
  Company Number: NL-ELI_LILLY_AND_COMPANY-NL201105006384

PATIENT
  Sex: Female

DRUGS (2)
  1. SINTROM [Concomitant]
     Dosage: UNK
  2. HUMALOG MIX 75/25 [Suspect]
     Dosage: UNK
     Dates: start: 20101101

REACTIONS (7)
  - SKIN DISCOLOURATION [None]
  - OEDEMA PERIPHERAL [None]
  - CONTUSION [None]
  - HYPERSENSITIVITY [None]
  - INTERNATIONAL NORMALISED RATIO INCREASED [None]
  - BLOOD IRON DECREASED [None]
  - RENAL IMPAIRMENT [None]
